FAERS Safety Report 17535403 (Version 1)
Quarter: 2020Q1

REPORT INFORMATION
  Report Type: Spontaneous
  Country: US (occurrence: US)
  Receive Date: 20200305
  Receipt Date: 20200305
  Transmission Date: 20200409
  Serious: No
  Sender: FDA-Public Use
  Company Number: None

PATIENT
  Sex: Female

DRUGS (2)
  1. AFINITOR [Suspect]
     Active Substance: EVEROLIMUS
     Indication: BREAST CANCER FEMALE
     Route: 048
     Dates: start: 20200115
  2. AFINITOR [Suspect]
     Active Substance: EVEROLIMUS
     Indication: BONE CANCER
     Route: 048
     Dates: start: 20200115

REACTIONS (1)
  - Swollen tongue [None]
